FAERS Safety Report 14740110 (Version 1)
Quarter: 2018Q2

REPORT INFORMATION
  Report Type: Spontaneous
  Country: FR (occurrence: FR)
  Receive Date: 20180410
  Receipt Date: 20180410
  Transmission Date: 20180711
  Serious: Yes (Other)
  Sender: FDA-Public Use
  Company Number: FR-MERCK KGAA-2045441

PATIENT
  Sex: Female

DRUGS (1)
  1. NOVOTHYROX [Suspect]
     Active Substance: LEVOTHYROXINE SODIUM
     Indication: PRODUCT USED FOR UNKNOWN INDICATION

REACTIONS (17)
  - Loss of personal independence in daily activities [None]
  - Frustration tolerance decreased [None]
  - Irritability [None]
  - Asthenia [None]
  - Anger [None]
  - Memory impairment [None]
  - Muscle spasms [None]
  - Pain [None]
  - Disturbance in attention [None]
  - Alopecia [None]
  - Fatigue [None]
  - Impatience [None]
  - Depression [None]
  - Crying [None]
  - Headache [None]
  - Perinatal depression [None]
  - Somnolence [None]
